FAERS Safety Report 12768940 (Version 3)
Quarter: 2017Q3

REPORT INFORMATION
  Report Type: Spontaneous
  Country: US (occurrence: US)
  Receive Date: 20160921
  Receipt Date: 20170914
  Transmission Date: 20171127
  Serious: No
  Sender: FDA-Public Use
  Company Number: US-JAZZ-2016-US-010372

PATIENT
  Sex: Male

DRUGS (20)
  1. FLUTICASONE PROPRIONATE [Concomitant]
     Active Substance: FLUTICASONE PROPIONATE
  2. EFFEXOR XR [Concomitant]
     Active Substance: VENLAFAXINE HYDROCHLORIDE
  3. OMEPRAZOLE DR [Concomitant]
     Active Substance: OMEPRAZOLE
  4. SIMVASTATIN. [Concomitant]
     Active Substance: SIMVASTATIN
  5. LOSARTAN POTASSIUM. [Concomitant]
     Active Substance: LOSARTAN POTASSIUM
  6. OXYBUTYNIN [Concomitant]
     Active Substance: OXYBUTYNIN
  7. VENLAFAXINE HCL [Concomitant]
     Active Substance: VENLAFAXINE HYDROCHLORIDE
  8. XYREM [Suspect]
     Active Substance: SODIUM OXYBATE
     Indication: NARCOLEPSY
     Dosage: 2.25G, BID
     Route: 048
     Dates: start: 201102, end: 201102
  9. TYLENOL PM EXTRA STRENGTH [Concomitant]
     Active Substance: ACETAMINOPHEN\DIPHENHYDRAMINE HYDROCHLORIDE
  10. VERAPAMIL [Concomitant]
     Active Substance: VERAPAMIL HYDROCHLORIDE
  11. FINASTERIDE. [Concomitant]
     Active Substance: FINASTERIDE
  12. XYREM [Suspect]
     Active Substance: SODIUM OXYBATE
     Dosage: 4.5G, BID
     Route: 048
     Dates: start: 2011
  13. PENTASA [Concomitant]
     Active Substance: MESALAMINE
  14. TAMSULOSIN HCL [Concomitant]
     Active Substance: TAMSULOSIN
  15. XYREM [Suspect]
     Active Substance: SODIUM OXYBATE
     Dosage: DOSE ADJUSTMENTS
     Route: 048
     Dates: start: 201102, end: 2011
  16. MODAFINIL. [Concomitant]
     Active Substance: MODAFINIL
  17. NAPROSYN [Concomitant]
     Active Substance: NAPROXEN
  18. LIPITOR [Concomitant]
     Active Substance: ATORVASTATIN CALCIUM
  19. METFORMIN HCL [Concomitant]
     Active Substance: METFORMIN HYDROCHLORIDE
  20. RITALIN LA [Concomitant]
     Active Substance: METHYLPHENIDATE HYDROCHLORIDE

REACTIONS (8)
  - Hypertension [Recovering/Resolving]
  - Bundle branch block right [Recovering/Resolving]
  - Irritable bowel syndrome [Recovering/Resolving]
  - Depression [Recovering/Resolving]
  - Pre-existing condition improved [Unknown]
  - Dizziness [Unknown]
  - Seasonal allergy [Recovering/Resolving]
  - Gastrooesophageal reflux disease [Recovering/Resolving]

NARRATIVE: CASE EVENT DATE: 2011
